FAERS Safety Report 7871364-1 (Version None)
Quarter: 2011Q4

REPORT INFORMATION
  Report Type: 
  Country: None (occurrence: None)
  Receive Date: 20111029
  Receipt Date: 20110301
  Transmission Date: 20120403
  Serious: No
  Sender: FDA-Public Use
  Company Number: US-AMGEN-USASP2011011602

PATIENT
  Age: 55 Year
  Sex: Female

DRUGS (2)
  1. TREXALL [Concomitant]
     Dates: start: 20090201
  2. ENBREL [Suspect]
     Indication: PSORIATIC ARTHROPATHY
     Dosage: 50 MG, QWK
     Dates: start: 20100430, end: 20100901

REACTIONS (3)
  - HAEMORRHAGE [None]
  - BLISTER [None]
  - INCREASED TENDENCY TO BRUISE [None]
